FAERS Safety Report 24962717 (Version 2)
Quarter: 2025Q1

REPORT INFORMATION
  Report Type: Spontaneous
  Country: JP (occurrence: JP)
  Receive Date: 20250212
  Receipt Date: 20250224
  Transmission Date: 20250408
  Serious: Yes (Hospitalization)
  Sender: GLAXOSMITHKLINE
  Company Number: JP-GSK-JP2025JPN015359

PATIENT

DRUGS (1)
  1. DAPRODUSTAT [Suspect]
     Active Substance: DAPRODUSTAT
     Indication: Nephrogenic anaemia
     Route: 048

REACTIONS (2)
  - Dehydration [Unknown]
  - Hypophagia [Unknown]
